FAERS Safety Report 6480460-5 (Version None)
Quarter: 2009Q4

REPORT INFORMATION
  Report Type: 
  Country: None (occurrence: None)
  Receive Date: 20091202
  Receipt Date: 20091119
  Transmission Date: 20100525
  Serious: Yes (Hospitalization, Other)
  Sender: FDA-Public Use
  Company Number: TPA2009A03860

PATIENT
  Age: 78 Year
  Sex: Male
  Weight: 93.8946 kg

DRUGS (4)
  1. ACTOS [Suspect]
     Indication: TYPE 2 DIABETES MELLITUS
     Dosage: 30 MG, 1 IN 1 D, PER ORAL ; 45 MG 1 IN 1 D, PER ORAL
     Route: 048
     Dates: end: 20080101
  2. ACTOS [Suspect]
     Indication: TYPE 2 DIABETES MELLITUS
     Dosage: 30 MG, 1 IN 1 D, PER ORAL ; 45 MG 1 IN 1 D, PER ORAL
     Route: 048
     Dates: start: 20080101
  3. DIOVAN [Concomitant]
  4. REFRESH TEARS(ALL OTHER THERAPEUTIC PRODUCTS) [Concomitant]

REACTIONS (4)
  - DRY EYE [None]
  - EYE IRRITATION [None]
  - GINGIVAL PAIN [None]
  - WEIGHT INCREASED [None]
